FAERS Safety Report 20908329 (Version 1)
Quarter: 2022Q2

REPORT INFORMATION
  Report Type: Spontaneous
  Country: TW (occurrence: TW)
  Receive Date: 20220603
  Receipt Date: 20220603
  Transmission Date: 20220721
  Serious: Yes (Hospitalization, Other)
  Sender: FDA-Public Use
  Company Number: TW-SUN PHARMACEUTICAL INDUSTRIES LTD-2022R1-339000

PATIENT
  Age: 52 Year
  Sex: Male

DRUGS (4)
  1. CISPLATIN [Suspect]
     Active Substance: CISPLATIN
     Indication: Thymoma malignant
     Dosage: UNK, 6 CYCLES
  2. DOXORUBICIN [Suspect]
     Active Substance: DOXORUBICIN
     Indication: Thymoma malignant
     Dosage: UNK, 6 CYCLES
  3. VINCRISTINE [Suspect]
     Active Substance: VINCRISTINE
     Indication: Thymoma malignant
     Dosage: UNK, 6 CYCLES
  4. CYCLOPHOSPHAMIDE [Suspect]
     Active Substance: CYCLOPHOSPHAMIDE
     Indication: Thymoma malignant
     Dosage: UNK, 6 CYCLES

REACTIONS (4)
  - Brain abscess [Recovered/Resolved]
  - Extrapulmonary tuberculosis [Recovered/Resolved]
  - Muscle abscess [Recovered/Resolved]
  - Nocardiosis [Recovered/Resolved]
